FAERS Safety Report 24538366 (Version 2)
Quarter: 2024Q4

REPORT INFORMATION
  Report Type: Report from Study
  Country: BR (occurrence: BR)
  Receive Date: 20241023
  Receipt Date: 20241029
  Transmission Date: 20250114
  Serious: Yes (Other)
  Sender: UCB
  Company Number: BR-UCBSA-2024050919

PATIENT
  Age: 51 Year
  Sex: Female
  Weight: 62 kg

DRUGS (9)
  1. CERTOLIZUMAB PEGOL [Suspect]
     Active Substance: CERTOLIZUMAB PEGOL
     Indication: Ankylosing spondylitis
     Dosage: 200 MILLIGRAM, EV 15 DAYS
     Route: 058
     Dates: start: 20210707
  2. AZATHIOPRINE [Concomitant]
     Active Substance: AZATHIOPRINE
     Indication: Immunosuppression
     Dosage: 50 MILLIGRAM, ONE TABLET PER DAY
  3. MAGNESIUM BISGLYCINATE [Concomitant]
     Indication: Memory impairment
     Dosage: 90 MILLIGRAM, 1 TABLET PER DAY
  4. PREDNISONE [Concomitant]
     Active Substance: PREDNISONE
     Indication: Sacral pain
     Dosage: 10 MILLIGRAM, 1 TABLET PER DAY
  5. PREDNISONE [Concomitant]
     Active Substance: PREDNISONE
     Indication: Sacral pain
  6. SILYMARINE [Concomitant]
     Indication: Blood cholesterol abnormal
     Dosage: 400 MILLIGRAM, 1 TABLET EVERY 12 HOURS
  7. QUETIAPINE [Concomitant]
     Active Substance: QUETIAPINE
     Indication: Depression
     Dosage: 25 MILLIGRAM, 1 TABLET AT NIGHT
  8. DIAZEPAM [Concomitant]
     Active Substance: DIAZEPAM
     Indication: Depression
     Dosage: 10 MILLIGRAM, 1 TABLET PER DAY
  9. CITALOPRAM [Concomitant]
     Active Substance: CITALOPRAM
     Indication: Depression
     Dosage: 20 MILLIGRAM, TABLET AT NIGHT

REACTIONS (7)
  - Pulmonary arterial pressure abnormal [Recovered/Resolved]
  - Dyspnoea [Recovered/Resolved]
  - Pain [Recovered/Resolved]
  - Bone pain [Unknown]
  - Swelling [Recovered/Resolved]
  - Discomfort [Unknown]
  - Inappropriate schedule of product administration [Unknown]

NARRATIVE: CASE EVENT DATE: 20240901
